FAERS Safety Report 7747696-4 (Version None)
Quarter: 2011Q3

REPORT INFORMATION
  Report Type: 
  Country: None (occurrence: None)
  Receive Date: 20110913
  Receipt Date: 20110906
  Transmission Date: 20111222
  Serious: Yes (Hospitalization, Other)
  Sender: FDA-Public Use
  Company Number: US-ELI_LILLY_AND_COMPANY-US201001002903

PATIENT
  Sex: Female
  Weight: 99.773 kg

DRUGS (8)
  1. FERROUS SULFATE TAB [Concomitant]
     Indication: SUPPLEMENTATION THERAPY
  2. INSULIN [Concomitant]
     Indication: DIABETES MELLITUS
     Dosage: UNK, UNKNOWN
     Route: 065
  3. TYLENOL                                 /SCH/ [Concomitant]
     Indication: PYREXIA
     Dosage: UNK, UNKNOWN
     Route: 065
  4. CEFTIN [Concomitant]
     Indication: INFLUENZA
     Dosage: UNK, UNKNOWN
     Route: 065
  5. FLAGYL [Concomitant]
     Indication: FUNGAL INFECTION
     Dosage: UNK, UNKNOWN
     Route: 065
  6. ATIVAN [Concomitant]
     Dosage: 1 MG, EACH EVENING
     Route: 065
  7. BYETTA [Suspect]
     Dosage: 5 UG, BID
     Dates: start: 20051001, end: 20060709
  8. SIMVASTATIN [Concomitant]
     Dosage: 40 MG, DAILY (1/D)

REACTIONS (9)
  - VOMITING [None]
  - OFF LABEL USE [None]
  - PANCREATITIS [None]
  - CHOLELITHIASIS [None]
  - ABDOMINAL PAIN [None]
  - DIARRHOEA [None]
  - NAUSEA [None]
  - PANCREATITIS ACUTE [None]
  - FOOD INTOLERANCE [None]
